FAERS Safety Report 17588036 (Version 2)
Quarter: 2020Q3

REPORT INFORMATION
  Report Type: Report from Study
  Country: None (occurrence: US)
  Receive Date: 20200327
  Receipt Date: 20200715
  Transmission Date: 20201102
  Serious: Yes (Hospitalization, Other)
  Sender: FDA-Public Use
  Company Number: US-ABBVIE-20K-163-3332328-00

PATIENT
  Sex: Female
  Weight: 140.29 kg

DRUGS (11)
  1. LEVOTHYROXINE. [Suspect]
     Active Substance: LEVOTHYROXINE
     Indication: BASEDOW^S DISEASE
  2. LABETALOL [Concomitant]
     Active Substance: LABETALOL\LABETALOL HYDROCHLORIDE
     Indication: HYPERTENSION
  3. ISOSORBIDE MONONITRATE. [Concomitant]
     Active Substance: ISOSORBIDE MONONITRATE
     Indication: CARDIAC DISORDER
  4. SYNTHROID [Suspect]
     Active Substance: LEVOTHYROXINE SODIUM
     Indication: BASEDOW^S DISEASE
  5. TORSEMIDE. [Concomitant]
     Active Substance: TORSEMIDE
     Indication: NEPHROPATHY
  6. LEVOTHYROXINE. [Suspect]
     Active Substance: LEVOTHYROXINE
     Indication: HYPOTHYROIDISM
     Route: 048
     Dates: start: 2017
  7. XARELTO [Concomitant]
     Active Substance: RIVAROXABAN
     Indication: PRODUCT USED FOR UNKNOWN INDICATION
  8. SYNTHROID [Suspect]
     Active Substance: LEVOTHYROXINE SODIUM
     Indication: HYPOTHYROIDISM
     Route: 048
     Dates: start: 1996, end: 2017
  9. SYNTHROID [Suspect]
     Active Substance: LEVOTHYROXINE SODIUM
     Indication: HYPERTHYROIDISM
     Route: 048
  10. LEVOTHYROXINE. [Suspect]
     Active Substance: LEVOTHYROXINE
     Indication: HYPERTHYROIDISM
  11. HYDRALAZINE [Concomitant]
     Active Substance: HYDRALAZINE HYDROCHLORIDE
     Indication: PRODUCT USED FOR UNKNOWN INDICATION

REACTIONS (23)
  - Diverticulitis [Not Recovered/Not Resolved]
  - Neuropathy peripheral [Unknown]
  - Atrial fibrillation [Recovering/Resolving]
  - Protein urine present [Recovering/Resolving]
  - Breast neoplasm [Unknown]
  - Cardiac failure [Not Recovered/Not Resolved]
  - Basedow^s disease [Unknown]
  - Weight decreased [Not Recovered/Not Resolved]
  - Visual impairment [Not Recovered/Not Resolved]
  - Disturbance in attention [Unknown]
  - Balance disorder [Unknown]
  - Cardiac failure congestive [Recovered/Resolved]
  - Peripheral swelling [Not Recovered/Not Resolved]
  - Oxygen saturation decreased [Recovered/Resolved]
  - Neoplasm malignant [Unknown]
  - Epistaxis [Recovered/Resolved]
  - Alopecia [Recovering/Resolving]
  - Loss of personal independence in daily activities [Recovered/Resolved]
  - Joint range of motion decreased [Recovered/Resolved]
  - Cardiomegaly [Not Recovered/Not Resolved]
  - Nephropathy [Not Recovered/Not Resolved]
  - Mobility decreased [Not Recovered/Not Resolved]
  - Fall [Recovered/Resolved]

NARRATIVE: CASE EVENT DATE: 2013
